APPROVED DRUG PRODUCT: LEVONORGESTREL AND ETHINYL ESTRADIOL
Active Ingredient: ETHINYL ESTRADIOL; LEVONORGESTREL
Strength: 0.02MG;0.1MG
Dosage Form/Route: TABLET;ORAL-28
Application: A077681 | Product #001 | TE Code: AB2
Applicant: DR REDDYS LABORATORIES SA
Approved: May 31, 2006 | RLD: No | RS: Yes | Type: RX